FAERS Safety Report 5834734-9 (Version None)
Quarter: 2008Q3

REPORT INFORMATION
  Report Type: 
  Country: None (occurrence: None)
  Receive Date: 20080801
  Receipt Date: 20080722
  Transmission Date: 20090109
  Serious: Yes (Other)
  Sender: FDA-Public Use
  Company Number: SPV1-2008-01532

PATIENT

DRUGS (1)
  1. MESALAMINE [Suspect]
     Dosage: 4.8 G, 1X/DAY:QD, ORAL
     Route: 048

REACTIONS (1)
  - HAEMATEMESIS [None]
